FAERS Safety Report 17126927 (Version 2)
Quarter: 2019Q4

REPORT INFORMATION
  Report Type: Spontaneous
  Country: US (occurrence: US)
  Receive Date: 20191209
  Receipt Date: 20191217
  Transmission Date: 20200122
  Serious: Yes (Death, Other)
  Sender: FDA-Public Use
  Company Number: US-ASTRAZENECA-2019SE09632

PATIENT

DRUGS (2)
  1. PRILOSEC [Suspect]
     Active Substance: OMEPRAZOLE MAGNESIUM
     Route: 048
     Dates: start: 1984, end: 2003
  2. PRILOSEC OTC [Suspect]
     Active Substance: OMEPRAZOLE MAGNESIUM
     Dosage: 2003 UNTIL THROUGH THE DATE OF DECENDENT^S INJURIES AND/OR DEATH
     Route: 048
     Dates: start: 2003

REACTIONS (6)
  - Chronic kidney disease [Unknown]
  - Renal injury [Unknown]
  - Death [Fatal]
  - Renal failure [Unknown]
  - Acute kidney injury [Unknown]
  - Rebound acid hypersecretion [Unknown]
